FAERS Safety Report 5566189-6 (Version None)
Quarter: 2007Q4

REPORT INFORMATION
  Report Type: 
  Country: None (occurrence: None)
  Receive Date: 20071219
  Receipt Date: 20070719
  Transmission Date: 20080405
  Serious: No
  Sender: FDA-Public Use
  Company Number: US-KINGPHARMUSA00001-K200700921

PATIENT

DRUGS (1)
  1. APLISOL [Suspect]
     Indication: TUBERCULIN TEST

REACTIONS (2)
  - FALSE POSITIVE TUBERCULOSIS TEST [None]
  - INJECTION SITE SWELLING [None]
